FAERS Safety Report 10065618 (Version 1)
Quarter: 2014Q2

REPORT INFORMATION
  Report Type: Spontaneous
  Country: US (occurrence: US)
  Receive Date: 20140408
  Receipt Date: 20140408
  Transmission Date: 20141212
  Serious: No
  Sender: FDA-Public Use
  Company Number: US-PFIZER INC-2014093508

PATIENT
  Sex: Female

DRUGS (1)
  1. PREMPRO [Suspect]
     Dosage: UNK
     Dates: start: 201403

REACTIONS (5)
  - Chest discomfort [Unknown]
  - Pain in extremity [Unknown]
  - Abdominal pain upper [Unknown]
  - Vision blurred [Unknown]
  - Constipation [Unknown]
